FAERS Safety Report 9525271 (Version 1)
Quarter: 2013Q3

REPORT INFORMATION
  Report Type: Report from Study
  Country: IN (occurrence: IN)
  Receive Date: 20130916
  Receipt Date: 20130916
  Transmission Date: 20140515
  Serious: Yes (Hospitalization)
  Sender: FDA-Public Use
  Company Number: IN-SANOFI-AVENTIS-2013SA088228

PATIENT
  Age: 43 Year
  Sex: Male
  Weight: 54 kg

DRUGS (6)
  1. ZALTRAP [Suspect]
     Indication: COLORECTAL CANCER METASTATIC
     Route: 042
     Dates: start: 20130828, end: 20130828
  2. IRINOTECAN [Suspect]
     Indication: COLORECTAL CANCER METASTATIC
     Route: 042
     Dates: start: 20130828, end: 20130828
  3. 5-FU [Suspect]
     Indication: COLORECTAL CANCER METASTATIC
     Route: 042
     Dates: start: 20130828, end: 20130828
  4. LEUCOVORIN [Suspect]
     Indication: COLORECTAL CANCER METASTATIC
     Route: 042
     Dates: start: 20130828, end: 20130828
  5. AUGMENTIN [Concomitant]
  6. CIPLOX [Concomitant]

REACTIONS (4)
  - Hiccups [Recovering/Resolving]
  - Pyrexia [Recovering/Resolving]
  - Oral candidiasis [Recovering/Resolving]
  - Mucosal inflammation [Recovering/Resolving]
